FAERS Safety Report 9894618 (Version 3)
Quarter: 2014Q1

REPORT INFORMATION
  Report Type: Report from Study
  Country: JP (occurrence: JP)
  Receive Date: 20140213
  Receipt Date: 20140314
  Transmission Date: 20141002
  Serious: Yes (Life-Threatening, Hospitalization, Other)
  Sender: FDA-Public Use
  Company Number: JP-CELGENEUS-087-21660-14010556

PATIENT
  Age: 75 Year
  Sex: Male
  Weight: 55 kg

DRUGS (10)
  1. LANTUS [Concomitant]
     Indication: DIABETES MELLITUS
     Dosage: 4 IU (INTERNATIONAL UNIT)
     Route: 058
     Dates: start: 20130808
  2. PARIET [Concomitant]
     Indication: GASTRITIS PROPHYLAXIS
     Dosage: 10 MILLIGRAM
     Route: 048
     Dates: start: 20130620
  3. MORPHINE [Concomitant]
     Indication: PRODUCT USED FOR UNKNOWN INDICATION
     Route: 041
     Dates: start: 20140103
  4. MAGLAX [Concomitant]
     Indication: CONSTIPATION
     Dosage: 2970 MILLIGRAM
     Route: 048
     Dates: start: 20130625
  5. LOXOPROFEN SODIUM HYDRATE [Concomitant]
     Indication: CANCER PAIN
     Dosage: 180 MILLIGRAM
     Route: 048
     Dates: start: 20131023
  6. CALONAL [Concomitant]
     Indication: CANCER PAIN
     Route: 048
     Dates: start: 20131023
  7. DEXART [Concomitant]
     Indication: PROPHYLAXIS OF NAUSEA AND VOMITING
     Dosage: 6.6 MILLIGRAM
     Route: 048
     Dates: start: 20130625
  8. SODIUM PICOSULFATE HYDRATE [Concomitant]
     Indication: CONSTIPATION
     Route: 048
     Dates: start: 20130625
  9. MIDAZOLAM [Concomitant]
     Indication: SEDATION
     Route: 065
     Dates: start: 20140130
  10. ABRAXANE [Suspect]
     Indication: GASTRIC CANCER
     Dosage: 156 MILLIGRAM
     Route: 041
     Dates: start: 20131108, end: 20131220

REACTIONS (2)
  - Interstitial lung disease [Not Recovered/Not Resolved]
  - Pulmonary artery thrombosis [Not Recovered/Not Resolved]
